FAERS Safety Report 6243582-X (Version None)
Quarter: 2009Q2

REPORT INFORMATION
  Report Type: 
  Country: None (occurrence: None)
  Receive Date: 20090624
  Receipt Date: 20090623
  Transmission Date: 20091009
  Serious: Yes (Hospitalization)
  Sender: FDA-Public Use
  Company Number: DE-PFIZER INC-2009192908

PATIENT
  Age: 68 Year

DRUGS (4)
  1. ECALTA [Suspect]
     Indication: PYREXIA
     Dosage: 100 MG/D
     Route: 042
     Dates: start: 20090325
  2. CLOFARABINE [Suspect]
     Indication: ACUTE MYELOID LEUKAEMIA RECURRENT
     Dosage: 40 MG/D
     Route: 042
     Dates: start: 20090313, end: 20090317
  3. CYTARABINE [Concomitant]
  4. MEROPENEM [Concomitant]

REACTIONS (4)
  - ANGIOEDEMA [None]
  - ECCHYMOSIS [None]
  - ERYTHEMA MULTIFORME [None]
  - RASH MACULO-PAPULAR [None]
